FAERS Safety Report 24014597 (Version 1)
Quarter: 2024Q2

REPORT INFORMATION
  Report Type: Spontaneous
  Country: CN (occurrence: CN)
  Receive Date: 20240626
  Receipt Date: 20240626
  Transmission Date: 20240716
  Serious: Yes (Hospitalization)
  Sender: FDA-Public Use
  Company Number: CN-BAYER-2024A090912

PATIENT
  Age: 52 Year
  Sex: Male
  Weight: 47 kg

DRUGS (1)
  1. GLUCOBAY [Suspect]
     Active Substance: ACARBOSE
     Indication: Type 2 diabetes mellitus
     Dosage: 100 MG, TID
     Route: 048
     Dates: start: 20240401, end: 20240601

REACTIONS (3)
  - Marasmus [Recovering/Resolving]
  - Physical deconditioning [None]
  - Weight decreased [None]

NARRATIVE: CASE EVENT DATE: 20240101
